FAERS Safety Report 24176052 (Version 2)
Quarter: 2024Q4

REPORT INFORMATION
  Report Type: Spontaneous
  Country: US (occurrence: US)
  Receive Date: 20240806
  Receipt Date: 20241223
  Transmission Date: 20250114
  Serious: No
  Sender: SANOFI AVENTIS
  Company Number: US-SA-2024SA079017

PATIENT
  Age: 8 Year
  Sex: Male

DRUGS (1)
  1. DUPIXENT [Suspect]
     Active Substance: DUPILUMAB
     Indication: Asthma
     Dosage: 300 MG, Q4W
     Route: 058

REACTIONS (3)
  - Ocular discomfort [Unknown]
  - Cough [Recovered/Resolved]
  - Initial insomnia [Unknown]

NARRATIVE: CASE EVENT DATE: 20240601
